FAERS Safety Report 23708140 (Version 1)
Quarter: 2024Q2

REPORT INFORMATION
  Report Type: Spontaneous
  Country: US (occurrence: None)
  Receive Date: 20240404
  Receipt Date: 20240404
  Transmission Date: 20240716
  Serious: Yes (Life-Threatening)
  Sender: FDA-Public Use
  Company Number: None

PATIENT
  Age: 53 Year
  Sex: Male
  Weight: 77.11 kg

DRUGS (3)
  1. DIETARY SUPPLEMENT\HERBALS [Suspect]
     Active Substance: DIETARY SUPPLEMENT\HERBALS
     Indication: Chronic kidney disease
     Dosage: FREQUENCY : DAILY??1 GUMMIE AND 1 SNSRY POP?
  2. EPHEDRINE [Suspect]
     Active Substance: EPHEDRINE
  3. METHAMPHETAMINE [Suspect]
     Active Substance: METHAMPHETAMINE

REACTIONS (2)
  - Adulterated product [None]
  - Blood pressure increased [None]

NARRATIVE: CASE EVENT DATE: 20231103
